FAERS Safety Report 14714860 (Version 1)
Quarter: 2018Q2

REPORT INFORMATION
  Report Type: Spontaneous
  Country: US (occurrence: US)
  Receive Date: 20180404
  Receipt Date: 20180404
  Transmission Date: 20180711
  Serious: No
  Sender: FDA-Public Use
  Company Number: US-ASTRAZENECA-2018SE29418

PATIENT
  Sex: Female
  Weight: 90.7 kg

DRUGS (3)
  1. ZOMIG ZMT [Suspect]
     Active Substance: ZOLMITRIPTAN
     Indication: MIGRAINE
     Dosage: 5.0MG AS REQUIRED
     Route: 048
  2. ZOMIG ZMT [Suspect]
     Active Substance: ZOLMITRIPTAN
     Indication: MIGRAINE
     Dosage: 5.0MG AS REQUIRED
     Route: 048
  3. ZOMIG ZMT [Suspect]
     Active Substance: ZOLMITRIPTAN
     Indication: MIGRAINE
     Dosage: GENERIC, 5 MG, AS REQUIRED AS REQUIRED
     Route: 048

REACTIONS (4)
  - Product packaging quantity issue [Unknown]
  - Product formulation issue [Unknown]
  - Fatigue [Unknown]
  - Product substitution issue [Unknown]
